FAERS Safety Report 8264517-4 (Version None)
Quarter: 2012Q2

REPORT INFORMATION
  Report Type: 
  Country: None (occurrence: None)
  Receive Date: 20120406
  Receipt Date: 20120402
  Transmission Date: 20120825
  Serious: Yes (Hospitalization)
  Sender: FDA-Public Use
  Company Number: ZA-SANOFI-AVENTIS-2012SA022909

PATIENT
  Age: 16 Year
  Sex: Male

DRUGS (4)
  1. APIDRA [Suspect]
     Dosage: FORM:VIALS
     Route: 058
  2. LANTUS [Suspect]
     Dosage: FORM:VIAL
     Route: 058
  3. APIDRA [Suspect]
     Dosage: FORM:VIALS
     Route: 058
     Dates: start: 20090101
  4. LANTUS [Suspect]
     Dosage: FORM:VIAL
     Route: 058
     Dates: start: 20090101

REACTIONS (4)
  - DIABETIC KETOACIDOSIS [None]
  - MALAISE [None]
  - ASTHENIA [None]
  - VOMITING [None]
